FAERS Safety Report 16222768 (Version 1)
Quarter: 2019Q2

REPORT INFORMATION
  Report Type: Spontaneous
  Country: US (occurrence: US)
  Receive Date: 20190422
  Receipt Date: 20190422
  Transmission Date: 20190711
  Serious: Yes (Hospitalization)
  Sender: FDA-Public Use
  Company Number: US-GLENMARK PHARMACEUTICALS-2019GMK040851

PATIENT
  Age: 14 Year
  Sex: Female

DRUGS (1)
  1. VERAPAMIL [Suspect]
     Active Substance: VERAPAMIL HYDROCHLORIDE
     Indication: PRODUCT USED FOR UNKNOWN INDICATION
     Dosage: 240 MG, UNK (15-20 TABLETS)
     Route: 048

REACTIONS (11)
  - Cardiac arrest [Unknown]
  - Electrocardiogram QT prolonged [Unknown]
  - Hyperglycaemia [Unknown]
  - Lactic acidosis [Recovered/Resolved]
  - Hypotension [Unknown]
  - Acute respiratory distress syndrome [Unknown]
  - Atrioventricular block [Recovered/Resolved]
  - Electrocardiogram QRS complex prolonged [Unknown]
  - Pulmonary oedema [Unknown]
  - Arrhythmia [Unknown]
  - Intentional overdose [Unknown]
